FAERS Safety Report 4932177-3 (Version None)
Quarter: 2006Q1

REPORT INFORMATION
  Report Type: 
  Country: None (occurrence: None)
  Receive Date: 20060303
  Receipt Date: 20010115
  Transmission Date: 20060701
  Serious: Yes (Hospitalization)
  Sender: FDA-Public Use
  Company Number: PHBS2001SE00727

PATIENT
  Age: 30 Year
  Sex: Female

DRUGS (1)
  1. METHERGINE [Suspect]
     Indication: UTERINE HAEMORRHAGE
     Dosage: 0.4 MG/D
     Route: 048
     Dates: start: 20000913, end: 20000914

REACTIONS (5)
  - BALANCE DISORDER [None]
  - CEREBRAL INFARCTION [None]
  - DIPLOPIA [None]
  - DIZZINESS [None]
  - VERTIGO [None]
